FAERS Safety Report 10739794 (Version 3)
Quarter: 2015Q1

REPORT INFORMATION
  Report Type: Report from Study
  Country: AU (occurrence: AU)
  Receive Date: 20150127
  Receipt Date: 20150203
  Transmission Date: 20150721
  Serious: Yes (Other)
  Sender: FDA-Public Use
  Company Number: AU-ROCHE-1526024

PATIENT

DRUGS (2)
  1. ALTEPLASE [Suspect]
     Active Substance: ALTEPLASE
     Indication: PLEURAL INFECTION
     Route: 034
  2. DORNASE ALFA [Suspect]
     Active Substance: DORNASE ALFA
     Indication: PLEURAL INFECTION
     Route: 034

REACTIONS (2)
  - Haemothorax [Recovered/Resolved]
  - Product use issue [Unknown]
